FAERS Safety Report 17143394 (Version 3)
Quarter: 2020Q3

REPORT INFORMATION
  Report Type: Spontaneous
  Country: ES (occurrence: ES)
  Receive Date: 20191212
  Receipt Date: 20200814
  Transmission Date: 20201102
  Serious: Yes (Other)
  Sender: FDA-Public Use
  Company Number: ES-MYLANLABS-2019M1120420

PATIENT
  Age: 9 Month
  Sex: Male
  Weight: 9.6 kg

DRUGS (4)
  1. MINOXIDIL. [Suspect]
     Active Substance: MINOXIDIL
     Indication: PRODUCT USED FOR UNKNOWN INDICATION
     Dosage: UNK
     Dates: start: 20181217
  2. OMEPRAZOLE. [Suspect]
     Active Substance: OMEPRAZOLE
     Dosage: 0.83 MILLIGRAM/KILOGRAM, QD
     Route: 048
     Dates: start: 20181217, end: 20190314
  3. OMEPRAZOLE. [Suspect]
     Active Substance: OMEPRAZOLE
     Indication: GASTROOESOPHAGEAL REFLUX DISEASE
     Dosage: 8 MILLIGRAM, BID (8 MG/12 HORAS)
     Route: 048
     Dates: start: 20181217
  4. OMEPRAZOLE. [Suspect]
     Active Substance: OMEPRAZOLE
     Dosage: 1.67 MILLIGRAM/KILOGRAM, QD (8 MG/12 HORAS)
     Dates: start: 20190314, end: 20190410

REACTIONS (2)
  - Product formulation issue [Recovered/Resolved]
  - Hypertrichosis [Recovered/Resolved]

NARRATIVE: CASE EVENT DATE: 2019
